FAERS Safety Report 24539640 (Version 1)
Quarter: 2024Q4

REPORT INFORMATION
  Report Type: Spontaneous
  Country: US (occurrence: None)
  Receive Date: 20241022
  Receipt Date: 20241022
  Transmission Date: 20250115
  Serious: No
  Sender: Public
  Company Number: None

PATIENT
  Age: 70 Year
  Sex: Female

DRUGS (1)
  1. FUROSCIX [Suspect]
     Active Substance: FUROSEMIDE
     Indication: Cardiac failure congestive
     Dosage: FREQUENCY : AS NEEDED;?
     Route: 058

REACTIONS (2)
  - Muscle spasms [None]
  - Dehydration [None]

NARRATIVE: CASE EVENT DATE: 20241021
